FAERS Safety Report 15504780 (Version 1)
Quarter: 2018Q4

REPORT INFORMATION
  Report Type: Spontaneous
  Country: US (occurrence: US)
  Receive Date: 20181016
  Receipt Date: 20181016
  Transmission Date: 20190205
  Serious: No
  Sender: FDA-Public Use
  Company Number: US-SA-2018SA283222

PATIENT
  Age: 69 Year
  Sex: Female

DRUGS (1)
  1. LANTUS [Suspect]
     Active Substance: INSULIN GLARGINE
     Indication: TYPE 2 DIABETES MELLITUS
     Dosage: 45 U, EVERY PM
     Route: 065

REACTIONS (4)
  - Visual impairment [Unknown]
  - Confusional state [Unknown]
  - Device issue [Unknown]
  - Glycosylated haemoglobin increased [Unknown]
